FAERS Safety Report 9296040 (Version 2)
Quarter: 2013Q2

REPORT INFORMATION
  Report Type: Spontaneous
  Country: US (occurrence: US)
  Receive Date: 20130517
  Receipt Date: 20130612
  Transmission Date: 20140414
  Serious: Yes (Other)
  Sender: FDA-Public Use
  Company Number: US-009507513-1305USA009447

PATIENT
  Age: 75 Year
  Sex: Female

DRUGS (2)
  1. ZIOPTAN [Suspect]
     Dosage: UNK
  2. COSOPT [Suspect]
     Dosage: UNK

REACTIONS (2)
  - Suicide attempt [Unknown]
  - Blindness [Unknown]
